FAERS Safety Report 6123479-6 (Version None)
Quarter: 2009Q1

REPORT INFORMATION
  Report Type: 
  Country: None (occurrence: None)
  Receive Date: 20090318
  Receipt Date: 20090316
  Transmission Date: 20090719
  Serious: Yes (Hospitalization, Other)
  Sender: FDA-Public Use
  Company Number: IN-ROXANE LABORATORIES, INC.-2009-RO-00242RO

PATIENT
  Age: 68 Year
  Sex: Male

DRUGS (8)
  1. METHOTREXATE [Suspect]
     Indication: PSORIASIS
  2. METHOTREXATE [Suspect]
     Dosage: 15MG
     Route: 048
  3. FILGRASTIM [Concomitant]
     Route: 058
  4. CEFTAZIDIME [Concomitant]
     Dosage: 3G
     Route: 042
  5. FLUCONAZOLE [Concomitant]
     Dosage: 150MG
     Route: 048
  6. PLATELETS [Concomitant]
  7. POVIDONE IODINE [Concomitant]
     Indication: WOUND TREATMENT
     Route: 061
  8. SILVER SULFADIAZINE [Concomitant]
     Indication: WOUND TREATMENT
     Route: 061

REACTIONS (3)
  - DRUG TOXICITY [None]
  - OCCULT BLOOD [None]
  - SKIN ULCER [None]
